FAERS Safety Report 7767387-3 (Version None)
Quarter: 2011Q3

REPORT INFORMATION
  Report Type: 
  Country: None (occurrence: None)
  Receive Date: 20110922
  Receipt Date: 20110113
  Transmission Date: 20111222
  Serious: Yes (Other)
  Sender: FDA-Public Use
  Company Number: US-ASTRAZENECA-2006UW09862

PATIENT
  Age: 30 Year
  Sex: Male
  Weight: 79.4 kg

DRUGS (15)
  1. ABILIFY [Concomitant]
     Route: 048
     Dates: start: 20050101
  2. LIPITOR [Concomitant]
     Dates: start: 20050101
  3. SIMVASTATIN [Concomitant]
     Dates: start: 20070616
  4. GLUCOPHAGE [Concomitant]
     Dosage: 1000-2000 MG
     Dates: start: 20050101
  5. SEROQUEL [Suspect]
     Dosage: 200 MG QAM ,1200 QHS
     Route: 048
     Dates: start: 20030127
  6. GLUCOPHAGE [Concomitant]
     Dosage: 500 MG -100 MG
     Dates: start: 20040626
  7. SEROQUEL [Suspect]
     Dosage: TOTAL DAILY DOSE 200 MG
     Route: 048
     Dates: start: 20040624, end: 20040713
  8. DEPAKOTE [Concomitant]
     Dosage: STRENGTH 500MG AND 1500MG, DOSE 1500MG DAILY
     Route: 048
     Dates: start: 20050101
  9. ZETIA [Concomitant]
     Dates: start: 20070302
  10. SEROQUEL [Suspect]
     Dosage: TOTAL DAILY DOSE 200MG
     Route: 048
     Dates: start: 20030127, end: 20040518
  11. RISPERDAL [Concomitant]
     Dosage: 2, 4 MG
     Dates: start: 19990101, end: 20010101
  12. SEROQUEL [Suspect]
     Indication: SCHIZOPHRENIA, PARANOID TYPE
     Dosage: 200MG-600MG
     Route: 048
     Dates: start: 20010710
  13. HALDOL [Concomitant]
     Dates: start: 19960101
  14. SEROQUEL [Suspect]
     Route: 048
     Dates: start: 20040713
  15. AVANDIA [Concomitant]
     Dosage: 4-8 MG DAILY
     Dates: start: 20060206

REACTIONS (3)
  - DIABETIC KETOACIDOSIS [None]
  - BLOOD CHOLESTEROL INCREASED [None]
  - DIABETES MELLITUS [None]
